FAERS Safety Report 4979373-7 (Version None)
Quarter: 2006Q2

REPORT INFORMATION
  Report Type: 
  Country: None (occurrence: None)
  Receive Date: 20060421
  Receipt Date: 20060414
  Transmission Date: 20061013
  Serious: Yes (Hospitalization)
  Sender: FDA-Public Use
  Company Number: US-MERCK-0604USA02704

PATIENT
  Age: 56 Year
  Sex: Female
  Weight: 73 kg

DRUGS (9)
  1. VIOXX [Suspect]
     Indication: PAIN
     Route: 048
     Dates: start: 20011101, end: 20030701
  2. CALCIUM (UNSPECIFIED) [Concomitant]
     Route: 065
  3. [THERAPY UNSPECIFIED] [Concomitant]
     Route: 065
  4. TYRAMINE [Concomitant]
     Route: 065
  5. COMPAZINE [Concomitant]
     Route: 065
  6. TYLENOL (CAPLET) [Concomitant]
     Route: 065
  7. LABETALOL HYDROCHLORIDE [Concomitant]
     Route: 065
  8. BUMEX [Concomitant]
     Route: 065
  9. K-DUR 10 [Concomitant]
     Route: 065

REACTIONS (2)
  - ANXIETY [None]
  - CEREBROVASCULAR ACCIDENT [None]
